FAERS Safety Report 10043449 (Version 2)
Quarter: 2014Q2

REPORT INFORMATION
  Report Type: Spontaneous
  Country: US (occurrence: US)
  Receive Date: 20140328
  Receipt Date: 20140507
  Transmission Date: 20141212
  Serious: No
  Sender: FDA-Public Use
  Company Number: US-PFIZER INC-2014084774

PATIENT
  Age: 66 Year
  Sex: Female

DRUGS (2)
  1. INLYTA [Suspect]
     Indication: RENAL CANCER
     Dosage: 5 MG, 2X/DAY
     Dates: start: 20140124
  2. INLYTA [Suspect]
     Dosage: 5 MG, DAILY
     Dates: start: 20140125

REACTIONS (2)
  - Cardiac disorder [Unknown]
  - Hypertension [Unknown]
